FAERS Safety Report 4310911-3 (Version None)
Quarter: 2004Q1

REPORT INFORMATION
  Report Type: 
  Country: None (occurrence: None)
  Receive Date: 20040302
  Receipt Date: 20040216
  Transmission Date: 20041129
  Serious: Yes (Life-Threatening, Hospitalization)
  Sender: FDA-Public Use
  Company Number: 235284

PATIENT
  Sex: Female
  Weight: 3.7 kg

DRUGS (2)
  1. ACTRAPID PENFILL HM (GE) 3 ML (INSULIN HUMAN) SOLUTION FOR INJECTION, [Suspect]
     Indication: DIABETES MELLITUS INSULIN-DEPENDENT
     Dosage: 44 IU, QD, INTRAUTERINE
     Route: 015
     Dates: start: 20030409, end: 20031203
  2. INSULATARD PENFILL (INSULIN HUMAN) SUSPENSION FOR INJECTION [Concomitant]

REACTIONS (4)
  - BREECH PRESENTATION [None]
  - CAESAREAN SECTION [None]
  - HYPOGLYCAEMIA NEONATAL [None]
  - MATERNAL DRUGS AFFECTING FOETUS [None]
